FAERS Safety Report 4751285-3 (Version None)
Quarter: 2005Q3

REPORT INFORMATION
  Report Type: 
  Country: None (occurrence: None)
  Receive Date: 20050823
  Receipt Date: 20050823
  Transmission Date: 20060218
  Serious: Yes (Other)
  Sender: FDA-Public Use
  Company Number: None

PATIENT
  Sex: Female

DRUGS (1)
  1. ZITHROMAX [Suspect]
     Dosage: RESPIRATORY    (VARIOUS LOTS OVER 2 YR. PERIOD)
     Route: 055

REACTIONS (3)
  - NASAL DISCOMFORT [None]
  - PRURITUS [None]
  - SNEEZING [None]
